FAERS Safety Report 7387308-5 (Version None)
Quarter: 2011Q1

REPORT INFORMATION
  Report Type: 
  Country: None (occurrence: None)
  Receive Date: 20110331
  Receipt Date: 20110325
  Transmission Date: 20110831
  Serious: Yes (Hospitalization)
  Sender: FDA-Public Use
  Company Number: PL-AMGEN-KDC391775

PATIENT
  Age: 75 Year
  Sex: Female

DRUGS (15)
  1. DENOSUMAB [Suspect]
     Indication: OSTEOPOROSIS POSTMENOPAUSAL
     Dosage: 60 MG, Q6MO
     Route: 058
     Dates: start: 20080208
  2. NYSTATIN [Concomitant]
     Dosage: UNK UNK, TID
     Dates: start: 20060507, end: 20060511
  3. PYRIDOXINE [Concomitant]
     Dosage: UNK UNK, BID
     Route: 048
     Dates: start: 20060901, end: 20060930
  4. DICLOFENAC SODIUM [Concomitant]
     Dosage: 75 MG, BID
     Route: 048
     Dates: start: 20060719, end: 20060726
  5. DIPROPHOS [Concomitant]
     Dosage: 7 MG, UNK
     Dates: start: 20081129, end: 20081129
  6. CIPROFLOXACIN [Concomitant]
     Dosage: 250 MG, BID
     Route: 048
     Dates: start: 20060507, end: 20060511
  7. TRAUMEEL [Concomitant]
     Dosage: UNK UNK, UNK
  8. GO-ON [Concomitant]
     Dosage: UNK UNK, QWK
     Dates: start: 20080801, end: 20080901
  9. GLUCOSAMINE [Concomitant]
     Dosage: 1000 MG, BID
     Route: 048
     Dates: start: 20081015, end: 20081128
  10. BETASERC [Concomitant]
     Dosage: 24 MG, QD
     Route: 048
     Dates: start: 20090217
  11. VAXIGRIP [Concomitant]
     Dosage: UNK UNK, UNK
     Route: 058
  12. LIDOCAINE [Concomitant]
     Dosage: UNK UNK, QWK
     Route: 030
     Dates: start: 20090106, end: 20090205
  13. NOOTROPIL [Concomitant]
     Dosage: 800 MG, BID
     Route: 048
     Dates: start: 19980101
  14. FURAGINUM [Concomitant]
     Dosage: UNK UNK, UNK
     Dates: start: 20061001
  15. MAGNESIUM [Concomitant]
     Dosage: UNK UNK, BID
     Route: 048
     Dates: start: 20060901, end: 20060930

REACTIONS (1)
  - ATRIAL FIBRILLATION [None]
